FAERS Safety Report 11780685 (Version 1)
Quarter: 2015Q4

REPORT INFORMATION
  Report Type: Report from Study
  Country: KR (occurrence: KR)
  Receive Date: 20151126
  Receipt Date: 20151126
  Transmission Date: 20160305
  Serious: Yes (Other)
  Sender: FDA-Public Use
  Company Number: KR-ROCHE-1666356

PATIENT

DRUGS (3)
  1. CAPECITABINE. [Suspect]
     Active Substance: CAPECITABINE
     Indication: GASTRIC CANCER
     Dosage: WITHIN 30 MINUTES AFTER A MEAL ON DAYS 1 TO 14 OF EACH 21-DAY CYCLE.
     Route: 048
  2. CISPLATIN. [Suspect]
     Active Substance: CISPLATIN
     Indication: GASTRIC CANCER
     Dosage: OVER 2 HRS ON DAY 1
     Route: 042
  3. AXITINIB [Suspect]
     Active Substance: AXITINIB
     Indication: GASTRIC CANCER
     Dosage: ON DAY 1 - 21
     Route: 048

REACTIONS (29)
  - Headache [Unknown]
  - Nausea [Unknown]
  - Vomiting [Unknown]
  - Acute kidney injury [Unknown]
  - Fatigue [Unknown]
  - Stomatitis [Unknown]
  - Hypermagnesaemia [Unknown]
  - Pneumonia [Unknown]
  - Palmar-plantar erythrodysaesthesia syndrome [Unknown]
  - Thrombosis [Unknown]
  - Hypertension [Unknown]
  - Thrombocytopenia [Unknown]
  - Hypoalbuminaemia [Unknown]
  - Hypoaesthesia [Unknown]
  - Diarrhoea [Unknown]
  - Gastrointestinal haemorrhage [Unknown]
  - Abdominal pain [Unknown]
  - Neutropenia [Unknown]
  - Leukopenia [Unknown]
  - Decreased appetite [Unknown]
  - Anaemia [Unknown]
  - Aspartate aminotransferase increased [Unknown]
  - Hyperglycaemia [Unknown]
  - Hyperbilirubinaemia [Unknown]
  - Hyperkalaemia [Unknown]
  - Acute prerenal failure [Unknown]
  - Hypophosphataemia [Unknown]
  - Hyponatraemia [Unknown]
  - Hypokalaemia [Unknown]
